FAERS Safety Report 22242661 (Version 2)
Quarter: 2023Q2

REPORT INFORMATION
  Report Type: Spontaneous
  Country: US (occurrence: US)
  Receive Date: 20230424
  Receipt Date: 20230509
  Transmission Date: 20230722
  Serious: Yes (Hospitalization, Other)
  Sender: FDA-Public Use
  Company Number: US-Covis Pharma GmbH-2023COV00924

PATIENT
  Age: 30 Year
  Sex: Female

DRUGS (3)
  1. MAKENA [Suspect]
     Active Substance: HYDROXYPROGESTERONE CAPROATE
     Indication: Premature delivery
     Route: 030
     Dates: start: 20170914, end: 20171207
  2. PROMETRIUM [Concomitant]
     Active Substance: PROGESTERONE
     Indication: Abortion spontaneous
     Dates: start: 20170622, end: 20170809
  3. IRON [Concomitant]
     Active Substance: IRON
     Indication: Anaemia
     Dates: start: 20171204, end: 20171210

REACTIONS (4)
  - Preterm premature rupture of membranes [Recovered/Resolved]
  - Amniotic cavity infection [Recovered/Resolved]
  - Foetal malpresentation [Recovered/Resolved]
  - Premature delivery [Recovered/Resolved]

NARRATIVE: CASE EVENT DATE: 20171210
